FAERS Safety Report 18636451 (Version 11)
Quarter: 2023Q2

REPORT INFORMATION
  Report Type: Report from Study
  Country: US (occurrence: None)
  Receive Date: 20201218
  Receipt Date: 20230615
  Transmission Date: 20230721
  Serious: Yes (Hospitalization)
  Sender: FDA-Public Use
  Company Number: US-ROCHE-2711333

PATIENT
  Age: 23 Year
  Sex: Female
  Weight: 42.8 kg

DRUGS (65)
  1. CIBISATAMAB [Suspect]
     Active Substance: CIBISATAMAB
     Indication: Colorectal cancer metastatic
     Dosage: WILL BE ADMINISTERED AT A FIXED DOSE OF 100 MG BY IV INFUSION ON DAY 1 OF EACH 21-DAY CYCLE UNTIL RA
     Route: 042
     Dates: start: 20201111
  2. ATEZOLIZUMAB [Suspect]
     Active Substance: ATEZOLIZUMAB
     Indication: Colorectal cancer metastatic
     Dosage: ATEZOLIZUMAB WILL BE ADMINISTERED AT A FIXED DOSE OF 1200 MG BY IV INFUSION ON DAY 1 OF EACH 21-DAY
     Route: 041
     Dates: start: 20201111
  3. OBINUTUZUMAB [Suspect]
     Active Substance: OBINUTUZUMAB
     Indication: Colorectal cancer metastatic
     Dosage: 2 WEEKS BEFORE CYCLE 1, DAY 1 (CYCLE = 21 DAYS).?ON 30/OCT/2020, AT 11:11 AM RECEIVED LAST DOSE OF O
     Route: 042
     Dates: start: 20201029
  4. NARCAN [Concomitant]
     Active Substance: NALOXONE HYDROCHLORIDE
     Indication: Prophylaxis
     Dates: start: 20201023
  5. NEURONTIN [Concomitant]
     Active Substance: GABAPENTIN
     Indication: Neuropathy peripheral
     Dates: start: 20201018
  6. NEURONTIN [Concomitant]
     Active Substance: GABAPENTIN
     Dates: start: 20201112
  7. NITROGLYCERIN [Concomitant]
     Active Substance: NITROGLYCERIN
     Indication: Proctalgia
     Route: 054
     Dates: start: 20201021
  8. NITROGLYCERIN [Concomitant]
     Active Substance: NITROGLYCERIN
     Dosage: 0.2%
     Route: 054
     Dates: start: 20201111
  9. LEXAPRO [Concomitant]
     Active Substance: ESCITALOPRAM OXALATE
     Indication: Anxiety
     Dates: start: 20201021
  10. LEXAPRO [Concomitant]
     Active Substance: ESCITALOPRAM OXALATE
     Indication: Depression
     Dates: start: 20201210
  11. DILAUDID [Concomitant]
     Active Substance: HYDROMORPHONE HYDROCHLORIDE
     Indication: Pain
     Dates: start: 20201021
  12. DILAUDID [Concomitant]
     Active Substance: HYDROMORPHONE HYDROCHLORIDE
     Indication: Proctalgia
     Route: 042
     Dates: start: 20201112, end: 20201118
  13. DILAUDID [Concomitant]
     Active Substance: HYDROMORPHONE HYDROCHLORIDE
     Route: 042
     Dates: start: 20201113, end: 20201113
  14. DILAUDID [Concomitant]
     Active Substance: HYDROMORPHONE HYDROCHLORIDE
     Dates: start: 20201118, end: 20201119
  15. DILAUDID [Concomitant]
     Active Substance: HYDROMORPHONE HYDROCHLORIDE
     Dates: start: 20201114, end: 20201117
  16. ZOFRAN [Concomitant]
     Active Substance: ONDANSETRON HYDROCHLORIDE
     Indication: Nausea
     Dates: start: 20200914
  17. ZOFRAN [Concomitant]
     Active Substance: ONDANSETRON HYDROCHLORIDE
     Indication: Vomiting
     Dates: start: 20201201, end: 20201201
  18. ZOFRAN [Concomitant]
     Active Substance: ONDANSETRON HYDROCHLORIDE
     Indication: Prophylaxis
     Dates: start: 20201117, end: 20201117
  19. IMODIUM A-D [Concomitant]
     Active Substance: LOPERAMIDE HYDROCHLORIDE
     Indication: Prophylaxis against diarrhoea
     Dates: start: 20200911
  20. ATIVAN [Concomitant]
     Active Substance: LORAZEPAM
     Indication: Anxiety
     Dates: start: 20201021
  21. ATIVAN [Concomitant]
     Active Substance: LORAZEPAM
     Indication: Seizure
     Dates: start: 20201210
  22. METHYLPREDNISOLONE [Concomitant]
     Active Substance: METHYLPREDNISOLONE
     Indication: Premedication
     Route: 042
     Dates: start: 20201029, end: 20201029
  23. METHYLPREDNISOLONE [Concomitant]
     Active Substance: METHYLPREDNISOLONE
     Route: 042
     Dates: start: 20201030, end: 20201030
  24. METHYLPREDNISOLONE [Concomitant]
     Active Substance: METHYLPREDNISOLONE
     Route: 042
     Dates: start: 20201111, end: 20201111
  25. METHYLPREDNISOLONE [Concomitant]
     Active Substance: METHYLPREDNISOLONE
     Route: 042
     Dates: start: 20201111, end: 20201111
  26. METHYLPREDNISOLONE [Concomitant]
     Active Substance: METHYLPREDNISOLONE
     Route: 042
     Dates: start: 20201201, end: 20201201
  27. METHYLPREDNISOLONE [Concomitant]
     Active Substance: METHYLPREDNISOLONE
     Route: 042
     Dates: start: 20201221, end: 20201221
  28. METHYLPREDNISOLONE [Concomitant]
     Active Substance: METHYLPREDNISOLONE
     Route: 042
     Dates: start: 20201112, end: 20201112
  29. DIPHENHYDRAMINE [Concomitant]
     Active Substance: DIPHENHYDRAMINE
     Indication: Premedication
     Route: 042
     Dates: start: 20201029, end: 20201029
  30. DIPHENHYDRAMINE [Concomitant]
     Active Substance: DIPHENHYDRAMINE
     Route: 042
     Dates: start: 20201030, end: 20201030
  31. DIPHENHYDRAMINE [Concomitant]
     Active Substance: DIPHENHYDRAMINE
     Route: 042
     Dates: start: 20201111, end: 20201111
  32. DIPHENHYDRAMINE [Concomitant]
     Active Substance: DIPHENHYDRAMINE
     Route: 042
     Dates: start: 20201201, end: 20201201
  33. DIPHENHYDRAMINE [Concomitant]
     Active Substance: DIPHENHYDRAMINE
     Route: 042
     Dates: start: 20201221, end: 20201221
  34. ACETAMINOPHEN [Concomitant]
     Active Substance: ACETAMINOPHEN
     Indication: Premedication
     Route: 048
     Dates: start: 20201029, end: 20201029
  35. ACETAMINOPHEN [Concomitant]
     Active Substance: ACETAMINOPHEN
     Indication: Pyrexia
     Route: 048
     Dates: start: 20201030, end: 20201030
  36. ACETAMINOPHEN [Concomitant]
     Active Substance: ACETAMINOPHEN
     Route: 048
     Dates: start: 20201111, end: 20201111
  37. ACETAMINOPHEN [Concomitant]
     Active Substance: ACETAMINOPHEN
     Route: 048
     Dates: start: 20201201, end: 20201201
  38. ACETAMINOPHEN [Concomitant]
     Active Substance: ACETAMINOPHEN
     Dates: start: 20201113, end: 20201113
  39. ACETAMINOPHEN [Concomitant]
     Active Substance: ACETAMINOPHEN
     Route: 048
     Dates: start: 20201221, end: 20201221
  40. LACTATED RINGERS SOLUTION [Concomitant]
     Active Substance: CALCIUM CHLORIDE\POTASSIUM CHLORIDE\SODIUM CHLORIDE\SODIUM LACTATE
     Dates: start: 20201110, end: 20201111
  41. LIDOCAINE [Concomitant]
     Active Substance: LIDOCAINE
     Indication: Proctalgia
     Dosage: 2% JELLY
     Dates: start: 20201111
  42. LIDOCAINE [Concomitant]
     Active Substance: LIDOCAINE
     Dates: start: 20201217, end: 20201217
  43. KEPPRA [Concomitant]
     Active Substance: LEVETIRACETAM
     Indication: Epilepsy
     Dates: start: 20201111
  44. LOVENOX [Concomitant]
     Active Substance: ENOXAPARIN SODIUM
     Dates: start: 20201111
  45. MOUTH KOTE [Concomitant]
     Dates: start: 20201112, end: 20201112
  46. FLAGYL [Concomitant]
     Active Substance: METRONIDAZOLE\METRONIDAZOLE HYDROCHLORIDE
     Dates: start: 20201112, end: 20201119
  47. MAXIPIME [Concomitant]
     Active Substance: CEFEPIME HYDROCHLORIDE
     Dates: start: 20201112, end: 20201118
  48. INDOMETHACIN [Concomitant]
     Active Substance: INDOMETHACIN
     Indication: Premedication
     Route: 048
     Dates: start: 20201111, end: 20201111
  49. IOHEXOL [Concomitant]
     Active Substance: IOHEXOL
     Indication: Nerve block
     Dates: start: 20201119, end: 20201119
  50. IOHEXOL [Concomitant]
     Active Substance: IOHEXOL
     Dates: start: 20201217, end: 20201217
  51. BACLOFEN [Concomitant]
     Active Substance: BACLOFEN
     Dates: start: 20201118, end: 20201119
  52. DIPRIVAN [Concomitant]
     Active Substance: PROPOFOL
     Dates: start: 20201117, end: 20201117
  53. MICRO-K [Concomitant]
     Active Substance: POTASSIUM CHLORIDE
     Dates: start: 20201116, end: 20201116
  54. MICRO-K [Concomitant]
     Active Substance: POTASSIUM CHLORIDE
     Dates: start: 20201115, end: 20201115
  55. MICRO-K [Concomitant]
     Active Substance: POTASSIUM CHLORIDE
     Dates: start: 20201118, end: 20201118
  56. MICRO-K [Concomitant]
     Active Substance: POTASSIUM CHLORIDE
     Dates: start: 20201112, end: 20201112
  57. SODIUM PHOSPHATE [Concomitant]
     Active Substance: SODIUM PHOSPHATE
     Indication: Colonoscopy
     Dates: start: 20201117, end: 20201117
  58. PANTOPRAZOLE [Concomitant]
     Active Substance: PANTOPRAZOLE
     Indication: Normocytic anaemia
     Dates: start: 20201115, end: 20201119
  59. PANTOPRAZOLE [Concomitant]
     Active Substance: PANTOPRAZOLE
     Indication: Rectal haemorrhage
  60. K-DUR [Concomitant]
     Active Substance: POTASSIUM CHLORIDE
     Dates: start: 20201115, end: 20201115
  61. GABAPENTIN [Concomitant]
     Active Substance: GABAPENTIN
     Indication: Neuralgia
     Dosage: ANTICONVULSANT
     Dates: start: 20201209
  62. PAMELOR [Concomitant]
     Active Substance: NORTRIPTYLINE HYDROCHLORIDE
     Indication: Depression
     Dates: start: 20201213, end: 20201216
  63. BEN GAY [Concomitant]
     Indication: Back pain
     Dates: start: 20201214, end: 20201216
  64. DOLOPHINE [Concomitant]
     Active Substance: METHADONE HYDROCHLORIDE
     Indication: Pain
     Route: 048
     Dates: start: 20201215, end: 20201217
  65. SODIUM CHLORIDE [Concomitant]
     Active Substance: SODIUM CHLORIDE
     Dates: start: 20201221, end: 20201221

REACTIONS (3)
  - Tumour inflammation [Recovered/Resolved]
  - Proctalgia [Recovered/Resolved]
  - Proctalgia [Recovered/Resolved]

NARRATIVE: CASE EVENT DATE: 20201105
